FAERS Safety Report 10223217 (Version 1)
Quarter: 2014Q2

REPORT INFORMATION
  Report Type: Spontaneous
  Country: US (occurrence: None)
  Receive Date: 20140606
  Receipt Date: 20140606
  Transmission Date: 20141212
  Serious: Yes (Life-Threatening, Hospitalization, Disabling)
  Sender: FDA-Public Use
  Company Number: None

PATIENT
  Age: 78 Year
  Sex: Male
  Weight: 84 kg

DRUGS (7)
  1. ZOMETA [Suspect]
     Indication: PRODUCT USED FOR UNKNOWN INDICATION
     Route: 042
     Dates: start: 20130729, end: 20131212
  2. DEXAMETHASONE [Concomitant]
  3. NEXIUM [Concomitant]
  4. PREGABALIN [Concomitant]
  5. SERTRALINE [Concomitant]
  6. FLOMAX [Concomitant]
  7. ATORVASTATIN [Concomitant]

REACTIONS (1)
  - Femur fracture [None]
